FAERS Safety Report 7747803-3 (Version None)
Quarter: 2011Q3

REPORT INFORMATION
  Report Type: 
  Country: None (occurrence: None)
  Receive Date: 20110913
  Receipt Date: 20110905
  Transmission Date: 20111222
  Serious: Yes (Other)
  Sender: FDA-Public Use
  Company Number: GB-B.I. PHARMACEUTICALS,INC./RIDGEFIELD-2011-BP-21937YA

PATIENT
  Age: 76 Year
  Sex: Male

DRUGS (17)
  1. FINASTERIDE [Suspect]
     Route: 048
     Dates: start: 20110810
  2. ASPIRIN [Suspect]
     Route: 065
     Dates: start: 20110517
  3. CANDESARTAN CILEXETIL [Suspect]
     Route: 065
  4. FINASTERIDE [Suspect]
     Route: 048
     Dates: start: 20110810
  5. FINASTERIDE [Suspect]
     Route: 048
     Dates: start: 20100219
  6. SIMVASTATIN [Suspect]
     Route: 065
     Dates: start: 20110704
  7. TAMSULOSIN HCL [Suspect]
     Route: 065
  8. FINASTERIDE [Suspect]
     Route: 048
     Dates: start: 20100414
  9. FINASTERIDE [Suspect]
     Route: 048
     Dates: start: 20100616
  10. SENNA [Suspect]
     Route: 065
  11. BETA BLOCKING AGENTS [Suspect]
     Route: 065
  12. FINASTERIDE [Suspect]
     Route: 048
     Dates: start: 20100119
  13. FINASTERIDE [Suspect]
     Route: 048
     Dates: start: 20100519
  14. LOSARTAN POTASSIUM [Suspect]
     Dosage: 100 MG
     Route: 065
     Dates: start: 20110713
  15. FINASTERIDE [Suspect]
     Route: 048
     Dates: start: 20100323
  16. FLECAINIDE ACETATE [Concomitant]
     Dosage: 100 MG
     Dates: start: 20110704
  17. FINASTERIDE [Suspect]
     Route: 048
     Dates: start: 20091229

REACTIONS (3)
  - LOSS OF CONSCIOUSNESS [None]
  - HAEMATURIA [None]
  - VENTRICULAR EXTRASYSTOLES [None]
